FAERS Safety Report 10204698 (Version 4)
Quarter: 2015Q1

REPORT INFORMATION
  Report Type: Spontaneous
  Country: US (occurrence: US)
  Receive Date: 20140529
  Receipt Date: 20150204
  Transmission Date: 20150720
  Serious: Yes (Death, Other)
  Sender: FDA-Public Use
  Company Number: US-GLAXOSMITHKLINE-A1074741A

PATIENT
  Age: 63 Year
  Sex: Female

DRUGS (5)
  1. FLOLAN [Suspect]
     Active Substance: EPOPROSTENOL SODIUM
     Dosage: 30 NG/KG/MIN CO
  2. FLOLAN [Suspect]
     Active Substance: EPOPROSTENOL SODIUM
     Indication: COR PULMONALE CHRONIC
     Dosage: 5 NG/KG/MIN (CONCENTRATION 10000 NG/ML, PUMP RATE 57 ML/DAY, VIAL STRENGTH 0.5 MG))
     Route: 042
     Dates: start: 20140429
  3. FLOLAN [Suspect]
     Active Substance: EPOPROSTENOL SODIUM
     Dosage: 24 NG/KG/MIN
  4. FLOLAN [Suspect]
     Active Substance: EPOPROSTENOL SODIUM
     Indication: CONNECTIVE TISSUE DISORDER
     Dosage: UNK
     Dates: start: 20140429
  5. REVATIO [Concomitant]
     Active Substance: SILDENAFIL CITRATE

REACTIONS (7)
  - Death [Fatal]
  - Central venous catheterisation [Unknown]
  - Catheter site haemorrhage [Recovered/Resolved]
  - Medical device removal [Unknown]
  - Device malfunction [Unknown]
  - Dyspnoea [Unknown]
  - Fluid retention [Unknown]

NARRATIVE: CASE EVENT DATE: 20140516
